FAERS Safety Report 7712503-2 (Version None)
Quarter: 2011Q3

REPORT INFORMATION
  Report Type: 
  Country: None (occurrence: None)
  Receive Date: 20110826
  Receipt Date: 20110819
  Transmission Date: 20111222
  Serious: Yes (Hospitalization)
  Sender: FDA-Public Use
  Company Number: US-B.I. PHARMACEUTICALS,INC./RIDGEFIELD-2011-BP-14177BP

PATIENT
  Age: 72 Year
  Sex: Male
  Weight: 84.9 kg

DRUGS (9)
  1. OMEPRAZOLE [Concomitant]
     Dosage: 20 MG
  2. FINASTENIDE [Concomitant]
     Dosage: 5 MG
  3. PRADAXA [Suspect]
     Indication: ATRIAL FIBRILLATION
     Dosage: 300 MG
     Route: 048
     Dates: start: 20110222
  4. PRADAXA [Suspect]
     Indication: ANTICOAGULANT THERAPY
  5. CARVEDILOL [Concomitant]
     Dosage: 25 MG
  6. FUROSEMIDE [Concomitant]
     Dosage: 20 MG
  7. SIMAVASTATIN [Concomitant]
     Dosage: 80 MG
  8. METFORMIN HCL [Concomitant]
     Dosage: 2000 MG
  9. LISINOPRIL [Concomitant]
     Dosage: 2.5 MG

REACTIONS (1)
  - EPISTAXIS [None]
